FAERS Safety Report 4760833-9 (Version None)
Quarter: 2005Q3

REPORT INFORMATION
  Report Type: 
  Country: None (occurrence: None)
  Receive Date: 20050901
  Receipt Date: 20050825
  Transmission Date: 20060218
  Serious: Yes (Other)
  Sender: FDA-Public Use
  Company Number: 2005120402

PATIENT
  Age: 87 Year
  Sex: Female
  Weight: 74.8435 kg

DRUGS (3)
  1. LIPITOR [Suspect]
     Indication: BLOOD CHOLESTEROL INCREASED
  2. LOPID [Suspect]
     Indication: BLOOD CHOLESTEROL INCREASED
  3. VITAMINS (VITAMINS) [Concomitant]

REACTIONS (3)
  - DRUG INEFFECTIVE [None]
  - MOVEMENT DISORDER [None]
  - MUSCULAR WEAKNESS [None]
